FAERS Safety Report 20431358 (Version 2)
Quarter: 2022Q2

REPORT INFORMATION
  Report Type: Spontaneous
  Country: US (occurrence: US)
  Receive Date: 20220204
  Receipt Date: 20220401
  Transmission Date: 20220721
  Serious: Yes (Hospitalization, Other)
  Sender: FDA-Public Use
  Company Number: US-ALLERGAN-2201609US

PATIENT
  Sex: Male

DRUGS (3)
  1. VRAYLAR [Suspect]
     Active Substance: CARIPRAZINE
     Indication: Schizoaffective disorder
     Dosage: 1.5 MG, QHS
     Route: 048
     Dates: start: 202103
  2. CLOZAPINE [Concomitant]
     Active Substance: CLOZAPINE
     Indication: Schizoaffective disorder
     Dosage: 200 MG, TID
  3. LITHIUM [Concomitant]
     Active Substance: LITHIUM
     Indication: Schizoaffective disorder
     Dosage: 600MG EARLY EVENING, 900MG AT BEDTIME

REACTIONS (7)
  - Urinary tract obstruction [Unknown]
  - Bladder obstruction [Unknown]
  - Blood creatinine increased [Recovered/Resolved]
  - Renal injury [Not Recovered/Not Resolved]
  - Hydronephrosis [Unknown]
  - Bladder trabeculation [Unknown]
  - Bladder dysfunction [Unknown]

NARRATIVE: CASE EVENT DATE: 20210727
